FAERS Safety Report 8840972 (Version 1)
Quarter: 2012Q4

REPORT INFORMATION
  Report Type: 
  Country: US (occurrence: US)
  Receive Date: 20121015
  Receipt Date: 20121015
  Transmission Date: 20130627
  Serious: Yes (Hospitalization, Other)
  Sender: FDA-Public Use
  Company Number: US-ASTRAZENECA-2010SE47750

PATIENT
  Sex: Female

DRUGS (2)
  1. NEXIUM [Suspect]
     Route: 048
  2. TOPROL XL [Suspect]
     Route: 048

REACTIONS (5)
  - Leukaemia [Recovering/Resolving]
  - Jaundice [Unknown]
  - Renal failure chronic [Unknown]
  - Liver disorder [Unknown]
  - Adverse event [Unknown]
